FAERS Safety Report 18895835 (Version 1)
Quarter: 2021Q1

REPORT INFORMATION
  Report Type: Spontaneous
  Country: ES (occurrence: ES)
  Receive Date: 20210216
  Receipt Date: 20210216
  Transmission Date: 20210420
  Serious: Yes (Other)
  Sender: FDA-Public Use
  Company Number: ES-CHEPLA-C20210730

PATIENT
  Age: 25 Year
  Sex: Male

DRUGS (8)
  1. VANCOMYCIN [Suspect]
     Active Substance: VANCOMYCIN
     Indication: PNEUMONIA
     Dosage: 1G/24 HOURS
  2. VORICONAZOLE. [Suspect]
     Active Substance: VORICONAZOLE
     Dosage: 400 MG EVERY 12 HOURS ON FIRST DAY, FOLLOWED BY 300 MG/12
  3. MEROPENEM. [Suspect]
     Active Substance: MEROPENEM
     Indication: PNEUMONIA
     Dosage: 500MG/24 HOURS
  4. AMPHOTERICIN B. [Suspect]
     Active Substance: AMPHOTERICIN B
     Indication: FUNGAL INFECTION
     Dosage: LIPOSOMAL AMPHOTERICIN B WAS STARTED (270 MG EVERY 24 HOURS)
  5. GANCICLOVIR. [Suspect]
     Active Substance: GANCICLOVIR
     Indication: PROPHYLAXIS
  6. CEFTAZIDIME. [Suspect]
     Active Substance: CEFTAZIDIME
     Indication: PNEUMONIA
     Dosage: 1 G EVERY 8 HOURS
  7. AMIKACIN. [Suspect]
     Active Substance: AMIKACIN
     Indication: PNEUMONIA
     Dosage: UNK
  8. TERBINAFINE. [Suspect]
     Active Substance: TERBINAFINE
     Dosage: UNK

REACTIONS (6)
  - Epilepsy [Unknown]
  - Altered state of consciousness [Unknown]
  - Septic shock [Unknown]
  - Influenza [Unknown]
  - Pneumonia bacterial [Unknown]
  - Hemiparesis [Unknown]
